FAERS Safety Report 9604275 (Version 3)
Quarter: 2013Q4

REPORT INFORMATION
  Report Type: Report from Study
  Country: BR (occurrence: BR)
  Receive Date: 20131008
  Receipt Date: 20131211
  Transmission Date: 20140711
  Serious: Yes (Other)
  Sender: FDA-Public Use
  Company Number: PHHY2013BR111561

PATIENT
  Sex: Female
  Weight: 87 kg

DRUGS (5)
  1. ACLASTA [Suspect]
     Indication: OSTEOPOROSIS
     Dosage: 5 MG, UNK
     Route: 042
     Dates: start: 2012
  2. CALCIUM D3 [Concomitant]
     Indication: OSTEOPOROSIS
     Dosage: 1 TABLET DAILY
     Route: 048
     Dates: start: 2012
  3. FLUOXETINE [Concomitant]
     Indication: ANXIETY
     Dosage: 1 TABLET (20MG) DAILY
     Route: 048
     Dates: start: 201302
  4. ENALAPRIL [Concomitant]
     Indication: HYPERTENSION
     Dosage: 2 TABLETS DAILY
     Route: 048
  5. DIURETICS [Concomitant]
     Indication: HYPERTENSION
     Dosage: 1 TABLET DAILY
     Route: 048

REACTIONS (10)
  - Hypercoagulation [Unknown]
  - Thrombosis [Unknown]
  - Phlebitis [Not Recovered/Not Resolved]
  - Local swelling [Not Recovered/Not Resolved]
  - Poor peripheral circulation [Not Recovered/Not Resolved]
  - Wound [Unknown]
  - Weight decreased [Unknown]
  - Spinal pain [Unknown]
  - Tremor [Unknown]
  - Chills [Unknown]
